FAERS Safety Report 13267531 (Version 4)
Quarter: 2017Q2

REPORT INFORMATION
  Report Type: Spontaneous
  Country: US (occurrence: US)
  Receive Date: 20170224
  Receipt Date: 20170510
  Transmission Date: 20170830
  Serious: Yes (Other)
  Sender: FDA-Public Use
  Company Number: US-PFIZER INC-2017074909

PATIENT
  Age: 35 Year
  Sex: Female

DRUGS (2)
  1. LETROZOLE. [Concomitant]
     Active Substance: LETROZOLE
     Dosage: UNK
  2. IBRANCE [Suspect]
     Active Substance: PALBOCICLIB
     Indication: BREAST CANCER
     Dosage: 100 MG, CYCLIC (ONCE PER DAY, EVERY DAY, WITH FOOD FOR 21 DAYS AND 7 DAYS OFF)
     Route: 048
     Dates: start: 201607

REACTIONS (3)
  - Fatigue [Unknown]
  - Neutropenia [Not Recovered/Not Resolved]
  - Alopecia [Unknown]
